FAERS Safety Report 23345140 (Version 1)
Quarter: 2023Q4

REPORT INFORMATION
  Report Type: Spontaneous
  Country: US (occurrence: US)
  Receive Date: 20231228
  Receipt Date: 20231228
  Transmission Date: 20240110
  Serious: Yes (Other)
  Sender: FDA-Public Use
  Company Number: US-TEVA-VS-3134661

PATIENT
  Age: 76 Year

DRUGS (1)
  1. TRAZODONE HYDROCHLORIDE [Suspect]
     Active Substance: TRAZODONE HYDROCHLORIDE
     Indication: Insomnia
     Dosage: 3 OR 4 TABLETS AT NIGHT
     Route: 065

REACTIONS (13)
  - Dementia [Unknown]
  - Burning sensation [Unknown]
  - Agitation [Unknown]
  - Insomnia [Unknown]
  - Somnolence [Unknown]
  - Dizziness [Unknown]
  - Constipation [Unknown]
  - Vision blurred [Unknown]
  - Haematochezia [Unknown]
  - Pain [Unknown]
  - Feeling abnormal [Unknown]
  - Malaise [Unknown]
  - Confusional state [Unknown]
